FAERS Safety Report 19467695 (Version 1)
Quarter: 2021Q2

REPORT INFORMATION
  Report Type: Spontaneous
  Country: US (occurrence: US)
  Receive Date: 20210628
  Receipt Date: 20210628
  Transmission Date: 20210717
  Serious: Yes (Hospitalization)
  Sender: FDA-Public Use
  Company Number: None

PATIENT
  Age: 50 Year
  Sex: Female

DRUGS (3)
  1. XANAX [Concomitant]
     Active Substance: ALPRAZOLAM
  2. GABAPENTIN. [Concomitant]
     Active Substance: GABAPENTIN
  3. SUTENT [Suspect]
     Active Substance: SUNITINIB MALATE
     Indication: RENAL CANCER
     Dosage: ?          OTHER DOSE:1 CAP;?
     Route: 048
     Dates: start: 20200507

REACTIONS (2)
  - Vasculitis [None]
  - Cellulitis [None]

NARRATIVE: CASE EVENT DATE: 20210625
